FAERS Safety Report 18122475 (Version 1)
Quarter: 2020Q3

REPORT INFORMATION
  Report Type: Spontaneous
  Country: US (occurrence: US)
  Receive Date: 20200807
  Receipt Date: 20200807
  Transmission Date: 20201103
  Serious: Yes (Death)
  Sender: FDA-Public Use
  Company Number: US-ROCHE-2656137

PATIENT
  Age: 52 Year
  Sex: Female

DRUGS (1)
  1. RITUXAN [Suspect]
     Active Substance: RITUXIMAB
     Indication: RHEUMATOID ARTHRITIS
     Dosage: INFUSE 1000 MG DOSE AT WEEK 0 AND 2 EVERY 4 MONTH, 10MG/ML INFUSION
     Route: 042
     Dates: start: 20200401

REACTIONS (1)
  - Death [Fatal]

NARRATIVE: CASE EVENT DATE: 20200509
